FAERS Safety Report 12924605 (Version 1)
Quarter: 2016Q4

REPORT INFORMATION
  Report Type: Spontaneous
  Country: US (occurrence: US)
  Receive Date: 20161109
  Receipt Date: 20161109
  Transmission Date: 20170207
  Serious: Yes (Other)
  Sender: FDA-Public Use
  Company Number: US-PFIZER INC-2016515411

PATIENT
  Age: 24 Year
  Sex: Female

DRUGS (5)
  1. LIDOCAINE HCL [Suspect]
     Active Substance: LIDOCAINE HYDROCHLORIDE
     Indication: CAESAREAN SECTION
     Dosage: 1% 5ML VIAL
     Route: 008
     Dates: start: 20161015
  2. EPINEPHRINE/LIDOCAINE HYDROCHLORIDE [Suspect]
     Active Substance: EPINEPHRINE\LIDOCAINE HYDROCHLORIDE
     Indication: CAESAREAN SECTION
     Dosage: UNK
     Route: 008
     Dates: start: 20161015
  3. BUPIVACAINE HCL [Suspect]
     Active Substance: BUPIVACAINE HYDROCHLORIDE
     Dosage: UNK
     Dates: start: 20161015
  4. MORPHINE SULFATE. [Suspect]
     Active Substance: MORPHINE SULFATE
     Dosage: UNK
     Dates: start: 20161015
  5. FENTANYL CITRATE. [Suspect]
     Active Substance: FENTANYL CITRATE
     Dosage: UNK
     Dates: start: 20161015

REACTIONS (8)
  - Hypoaesthesia [Recovering/Resolving]
  - Abasia [Recovered/Resolved with Sequelae]
  - Post procedural complication [None]
  - Muscular weakness [Recovering/Resolving]
  - Urinary incontinence [Unknown]
  - Neurotoxicity [Recovering/Resolving]
  - Caesarean section [None]
  - Maternal exposure during delivery [None]

NARRATIVE: CASE EVENT DATE: 20161015
